FAERS Safety Report 8905245 (Version 1)
Quarter: 2012Q4

REPORT INFORMATION
  Report Type: 
  Country: NO (occurrence: NO)
  Receive Date: 20121112
  Receipt Date: 20121112
  Transmission Date: 20130627
  Serious: Yes (Other)
  Sender: FDA-Public Use
  Company Number: PHHY2012NO086293

PATIENT
  Sex: Female

DRUGS (2)
  1. EXFORGE HCT [Suspect]
     Indication: HYPERTENSION
     Dosage: 1 DF (160 mg vals/ 10 mg amlo/ 12.5 mg HCTZ),
  2. VALLERGAN [Concomitant]

REACTIONS (7)
  - Lichen planus [Recovering/Resolving]
  - Lichenoid keratosis [Recovering/Resolving]
  - Skin lesion [Recovering/Resolving]
  - Rash [Recovering/Resolving]
  - Eczema [Recovering/Resolving]
  - Discomfort [Unknown]
  - Impaired healing [Unknown]
